FAERS Safety Report 7276452-9 (Version None)
Quarter: 2011Q1

REPORT INFORMATION
  Report Type: 
  Country: None (occurrence: None)
  Receive Date: 20110204
  Receipt Date: 20110124
  Transmission Date: 20110831
  Serious: Yes (Other)
  Sender: FDA-Public Use
  Company Number: FR-WATSON-2011-01300

PATIENT
  Age: 66 Year
  Sex: Male

DRUGS (3)
  1. BACLOFEN [Suspect]
     Indication: ALCOHOL DETOXIFICATION
     Dosage: 20 MG, DAILY
  2. BACLOFEN [Suspect]
     Dosage: 60 MG, DAILY
  3. BACLOFEN [Suspect]
     Dosage: 40 MG, DAILY

REACTIONS (4)
  - DISINHIBITION [None]
  - AGGRESSION [None]
  - IRRITABILITY [None]
  - ELECTROENCEPHALOGRAM ABNORMAL [None]
